FAERS Safety Report 14651248 (Version 3)
Quarter: 2018Q2

REPORT INFORMATION
  Report Type: Spontaneous
  Country: ES (occurrence: ES)
  Receive Date: 20180316
  Receipt Date: 20180409
  Transmission Date: 20180711
  Serious: Yes (Other)
  Sender: FDA-Public Use
  Company Number: ES-ALLERGAN-1813775US

PATIENT
  Age: 19 Year
  Sex: Male

DRUGS (2)
  1. DIAZEPAN PRODES [Concomitant]
     Indication: TIC
     Dosage: 2.5 MG (1 TABLET), QAM
  2. BOTOX [Suspect]
     Active Substance: ONABOTULINUMTOXINA
     Indication: TIC
     Dosage: UNK, SINGLE
     Route: 030
     Dates: start: 20180220, end: 20180220

REACTIONS (16)
  - Rhinitis [Recovered/Resolved]
  - Choking sensation [Not Recovered/Not Resolved]
  - Dyspnoea [Not Recovered/Not Resolved]
  - Muscular weakness [Not Recovered/Not Resolved]
  - Productive cough [Unknown]
  - Asthenia [Not Recovered/Not Resolved]
  - Fatigue [Unknown]
  - Vertigo [Unknown]
  - Pyrexia [Recovered/Resolved]
  - Off label use [Unknown]
  - Nasal congestion [Recovered/Resolved]
  - Throat irritation [Recovered/Resolved]
  - Fatigue [Not Recovered/Not Resolved]
  - Influenza like illness [Recovered/Resolved]
  - Headache [Recovered/Resolved]
  - Nuchal rigidity [Unknown]

NARRATIVE: CASE EVENT DATE: 20180221
